FAERS Safety Report 23677472 (Version 1)
Quarter: 2024Q1

REPORT INFORMATION
  Report Type: Spontaneous
  Country: US (occurrence: None)
  Receive Date: 20240326
  Receipt Date: 20240326
  Transmission Date: 20240410
  Serious: Yes (Death, Hospitalization)
  Sender: FDA-Public Use
  Company Number: None

PATIENT
  Age: 70 Year
  Sex: Male

DRUGS (17)
  1. OFEV [Suspect]
     Active Substance: NINTEDANIB
     Indication: Interstitial lung disease
     Dosage: FREQUENCY : TWICE A DAY;?
     Route: 048
     Dates: start: 20210517, end: 20230418
  2. HYDRALAZINE [Concomitant]
  3. METOPROLOL [Concomitant]
  4. APIXABAN [Concomitant]
  5. MONTELUKAST [Concomitant]
     Active Substance: MONTELUKAST SODIUM
  6. ATORVASTATIN [Concomitant]
  7. WIXELA INHUB [Concomitant]
     Active Substance: FLUTICASONE PROPIONATE\SALMETEROL XINAFOATE
  8. FOLIC ACID [Concomitant]
     Active Substance: FOLIC ACID
  9. RENVELA [Concomitant]
     Active Substance: SEVELAMER CARBONATE
  10. TRAZODONE [Concomitant]
     Active Substance: TRAZODONE HYDROCHLORIDE
  11. LORAZEPAM [Concomitant]
     Active Substance: LORAZEPAM
  12. PANTOPRAZOLE [Concomitant]
     Active Substance: PANTOPRAZOLE
  13. prenisone [Concomitant]
  14. IPRATROPIUM [Concomitant]
     Active Substance: IPRATROPIUM
  15. lidocaine top oint [Concomitant]
  16. FLONASE [Concomitant]
     Active Substance: FLUTICASONE PROPIONATE
  17. VITAMIN B12 [Concomitant]
     Active Substance: CYANOCOBALAMIN

REACTIONS (6)
  - Rectal haemorrhage [None]
  - Clostridium difficile infection [None]
  - Respiratory failure [None]
  - Septic shock [None]
  - Staphylococcal infection [None]
  - Klebsiella infection [None]

NARRATIVE: CASE EVENT DATE: 20230329
